FAERS Safety Report 6582052-6 (Version None)
Quarter: 2010Q1

REPORT INFORMATION
  Report Type: 
  Country: None (occurrence: None)
  Receive Date: 20100215
  Receipt Date: 20100204
  Transmission Date: 20100710
  Serious: Yes (Other)
  Sender: FDA-Public Use
  Company Number: AU-AMGEN-QUU390708

PATIENT
  Sex: Female
  Weight: 65.1 kg

DRUGS (1)
  1. NPLATE [Suspect]
     Indication: DRUG USE FOR UNKNOWN INDICATION
     Route: 058

REACTIONS (4)
  - CIRCUMSTANCE OR INFORMATION CAPABLE OF LEADING TO MEDICATION ERROR [None]
  - INJECTION SITE HAEMATOMA [None]
  - PLATELET COUNT DECREASED [None]
  - WRONG TECHNIQUE IN DRUG USAGE PROCESS [None]
